FAERS Safety Report 24168505 (Version 3)
Quarter: 2024Q4

REPORT INFORMATION
  Report Type: Spontaneous
  Country: US (occurrence: US)
  Receive Date: 20240802
  Receipt Date: 20241018
  Transmission Date: 20250114
  Serious: Yes (Other)
  Sender: ALEXION PHARMACEUTICALS
  Company Number: 2024A171524

PATIENT
  Age: 56 Year
  Weight: 92.079 kg

DRUGS (4)
  1. TEZSPIRE [Suspect]
     Active Substance: TEZEPELUMAB-EKKO
     Indication: Asthma
     Dosage: 210 MILLIGRAM, UNK, FREQUENCY: Q4WK
  2. TEZSPIRE [Suspect]
     Active Substance: TEZEPELUMAB-EKKO
     Dosage: 210 MILLIGRAM, UNK, FREQUENCY: Q4WK
  3. TEZSPIRE [Suspect]
     Active Substance: TEZEPELUMAB-EKKO
     Dosage: 210 MILLIGRAM, UNK, FREQUENCY: Q4WK
  4. TEZSPIRE [Suspect]
     Active Substance: TEZEPELUMAB-EKKO
     Dosage: 210 MILLIGRAM, UNK, FREQUENCY: Q4WK

REACTIONS (6)
  - Dizziness [Recovered/Resolved]
  - Throat tightness [Recovered/Resolved]
  - Feeling hot [Recovered/Resolved]
  - Hypoaesthesia oral [Recovered/Resolved]
  - Paraesthesia [Recovered/Resolved]
  - Anaphylactic reaction [Recovered/Resolved]
